FAERS Safety Report 4376789-7 (Version None)
Quarter: 2004Q2

REPORT INFORMATION
  Report Type: 
  Country: None (occurrence: None)
  Receive Date: 20040608
  Receipt Date: 20040526
  Transmission Date: 20050107
  Serious: Yes (Hospitalization)
  Sender: FDA-Public Use
  Company Number: HQWYE161102JUN04

PATIENT
  Age: 55 Year
  Sex: Female

DRUGS (10)
  1. RAPAMUNE [Suspect]
     Indication: IMMUNOSUPPRESSANT DRUG THERAPY
     Dosage: ADJUSTED TO DRUG LEVEL 10-15 NG/ML RANGE
  2. RAPAMUNE [Suspect]
     Indication: IMMUNOSUPPRESSANT DRUG THERAPY
     Dosage: 5 MG 4X PER 1 DAY
  3. CORDARONE [Suspect]
     Indication: ATRIAL FIBRILLATION
     Dosage: 200 MG 2X PER 1 DAY, ORAL
     Route: 048
  4. CORDARONE [Suspect]
     Indication: ATRIAL FLUTTER
     Dosage: 200 MG 2X PER 1 DAY, ORAL
     Route: 048
  5. PREDNISONE TAB [Concomitant]
  6. TACROLIMUS (TACROLIMUS) [Concomitant]
  7. .......... [Concomitant]
  8. .......... [Concomitant]
  9. THYMOGLOBULIN [Concomitant]
  10. SYNTHROID     (LEVOTHRYOXINE SODIUM) [Concomitant]

REACTIONS (18)
  - ASTHENIA [None]
  - BRONCHIECTASIS [None]
  - CARDIAC FAILURE CONGESTIVE [None]
  - CYTOMEGALOVIRUS INFECTION [None]
  - DIALYSIS [None]
  - DRUG TOXICITY [None]
  - DYSPNOEA [None]
  - EJECTION FRACTION DECREASED [None]
  - HAEMOPTYSIS [None]
  - HYPOXIA [None]
  - LUNG NEOPLASM [None]
  - OEDEMA PERIPHERAL [None]
  - PULMONARY ALVEOLAR HAEMORRHAGE [None]
  - PULMONARY FIBROSIS [None]
  - PULMONARY TOXICITY [None]
  - RENAL FAILURE ACUTE [None]
  - RENAL TUBULAR NECROSIS [None]
  - SUPERINFECTION LUNG [None]
